FAERS Safety Report 6048607-2 (Version None)
Quarter: 2009Q1

REPORT INFORMATION
  Report Type: 
  Country: None (occurrence: None)
  Receive Date: 20090121
  Receipt Date: 20090121
  Transmission Date: 20090719
  Serious: Yes (Other)
  Sender: FDA-Public Use
  Company Number: None

PATIENT
  Age: 52 Year
  Sex: Male
  Weight: 106.5953 kg

DRUGS (1)
  1. FLOVENT HFA [Suspect]
     Indication: COUGH
     Dosage: 2 PUFFS 2 X DAILY

REACTIONS (2)
  - HYPERAESTHESIA [None]
  - PAIN [None]
